FAERS Safety Report 4684491-7 (Version None)
Quarter: 2005Q2

REPORT INFORMATION
  Report Type: 
  Country: None (occurrence: None)
  Receive Date: 20050606
  Receipt Date: 20050524
  Transmission Date: 20051028
  Serious: Yes (Other)
  Sender: FDA-Public Use
  Company Number: 2005078569

PATIENT
  Age: 2 Month
  Sex: Male

DRUGS (1)
  1. INFANT'S PEDIACARE DECONGESTANT AND COUGH DROPS (PSEUDOEPHEDRINE, DEXT [Suspect]
     Indication: COUGH
     Dosage: 0.4 ML PRN, ORAL
     Route: 048
     Dates: start: 20050201

REACTIONS (5)
  - BLEPHAROSPASM [None]
  - CEREBRAL ISCHAEMIA [None]
  - DEPRESSED LEVEL OF CONSCIOUSNESS [None]
  - EYE DISORDER [None]
  - OXYGEN SATURATION DECREASED [None]
